FAERS Safety Report 11807210 (Version 1)
Quarter: 2015Q4

REPORT INFORMATION
  Report Type: Report from Study
  Country: AU (occurrence: AU)
  Receive Date: 20151207
  Receipt Date: 20151207
  Transmission Date: 20160305
  Serious: Yes (Hospitalization)
  Sender: FDA-Public Use
  Company Number: AU-REGENERON PHARMACEUTICALS, INC.-2014-20646

PATIENT

DRUGS (4)
  1. EYLEA [Suspect]
     Active Substance: AFLIBERCEPT
     Indication: POLYPOIDAL CHOROIDAL VASCULOPATHY
     Dosage: 0.5 ML MILLILITRE(S), UNK
     Route: 031
     Dates: start: 20140923, end: 20141027
  2. PLACEBO [Suspect]
     Active Substance: UNSPECIFIED INGREDIENT
     Indication: POLYPOIDAL CHOROIDAL VASCULOPATHY
     Dosage: 0.5 ML MILLILITRE(S), UNK
     Route: 031
     Dates: start: 20140923, end: 20141027
  3. VISUDYNE [Suspect]
     Active Substance: VERTEPORFIN
     Indication: POLYPOIDAL CHOROIDAL VASCULOPATHY
  4. BLINDED LASER [Suspect]
     Active Substance: DEVICE
     Indication: POLYPOIDAL CHOROIDAL VASCULOPATHY
     Dosage: 0.5 ML MILLILITRE(S), UNK
     Route: 031
     Dates: start: 20140923, end: 20141027

REACTIONS (2)
  - Animal bite [Recovered/Resolved]
  - Wound [None]

NARRATIVE: CASE EVENT DATE: 20141022
